FAERS Safety Report 6623551-8 (Version None)
Quarter: 2010Q1

REPORT INFORMATION
  Report Type: 
  Country: None (occurrence: None)
  Receive Date: 20100305
  Receipt Date: 20100228
  Transmission Date: 20100710
  Serious: Yes (Life-Threatening, Hospitalization, Other)
  Sender: FDA-Public Use
  Company Number: CL-75-2010

PATIENT
  Age: 65 Year
  Sex: Female

DRUGS (2)
  1. CIPROFLOXACIN [Suspect]
     Indication: URINARY TRACT INFECTION
     Dosage: 250 MG TWICE DAILY, ORAL; ONE DOSE
     Route: 048
  2. GLIPIZIDE [Suspect]
     Indication: DIABETES MELLITUS
     Dosage: 5 MG ONE A DAY ORAL
     Route: 048

REACTIONS (6)
  - ARRHYTHMIA [None]
  - CONVULSION [None]
  - DRUG INTERACTION [None]
  - HYPERINSULINAEMIA [None]
  - HYPOGLYCAEMIA [None]
  - PNEUMONIA ASPIRATION [None]
